FAERS Safety Report 4906979-3 (Version None)
Quarter: 2006Q1

REPORT INFORMATION
  Report Type: 
  Country: None (occurrence: None)
  Receive Date: 20060207
  Receipt Date: 20060204
  Transmission Date: 20060701
  Serious: Yes (Other)
  Sender: FDA-Public Use
  Company Number: 217382

PATIENT
  Sex: Male

DRUGS (5)
  1. AVASTIN(BEVACIZUMAB) PWDR + SOLVENT,INFUSION SOLN, 100MG [Suspect]
     Indication: COLORECTAL CANCER METASTATIC
     Dates: start: 20040101
  2. XELODA [Concomitant]
  3. FLUOROURACIL [Concomitant]
  4. CAMPTOSAR [Concomitant]
  5. ZOMETA [Concomitant]

REACTIONS (6)
  - IMPAIRED HEALING [None]
  - OSTEONECROSIS [None]
  - PAIN [None]
  - POST PROCEDURAL COMPLICATION [None]
  - TOOTH INFECTION [None]
  - WOUND [None]
